FAERS Safety Report 20856230 (Version 3)
Quarter: 2025Q3

REPORT INFORMATION
  Report Type: Report from Study
  Country: KR (occurrence: KR)
  Receive Date: 20220520
  Receipt Date: 20250918
  Transmission Date: 20251021
  Serious: Yes (Other)
  Sender: TAKEDA
  Company Number: KR-TAKEDA-2022TUS033450

PATIENT
  Age: 45 Year
  Sex: Female
  Weight: 56 kg

DRUGS (37)
  1. VEDOLIZUMAB [Suspect]
     Active Substance: VEDOLIZUMAB
     Indication: Colitis ulcerative
  2. Feroba you [Concomitant]
     Indication: Normochromic anaemia
     Dosage: 256 MILLIGRAM, QD
     Dates: start: 20210112, end: 20220103
  3. Feroba you [Concomitant]
     Dosage: 256 MILLIGRAM, BID
     Dates: start: 20220125, end: 20220712
  4. Feroba you [Concomitant]
     Dosage: 256 MILLIGRAM, QD
     Dates: start: 20220713
  5. B-com [Concomitant]
     Indication: Vitamin supplementation
     Dosage: UNK UNK, QD
     Dates: start: 20200917, end: 20220103
  6. Encover [Concomitant]
     Indication: Haematochezia
     Dosage: 200 MILLIGRAM, QD
     Dates: start: 20211229, end: 20211229
  7. Encover [Concomitant]
     Dosage: 200 MILLILITER, TID
     Dates: start: 20211230, end: 20220103
  8. Nutriflex lipid peri [Concomitant]
     Indication: Haematochezia
     Dosage: 1250 MILLIGRAM, QD
     Dates: start: 20211229, end: 20211229
  9. Ciplus [Concomitant]
     Indication: Haematochezia
     Dosage: 400 MILLIGRAM, QD
     Dates: start: 20211229, end: 20211229
  10. Ciplus [Concomitant]
     Dosage: 400 MILLIGRAM, TID
     Dates: start: 20211230, end: 20211230
  11. Ciplus [Concomitant]
     Dosage: 400 MILLIGRAM, BID
     Dates: start: 20211231, end: 20220103
  12. Disolrin [Concomitant]
     Indication: Haematochezia
     Dosage: 40 MILLIGRAM, QD
     Dates: start: 20211229, end: 20220103
  13. PHAZYME [Concomitant]
     Active Substance: DIMETHICONE 410
     Indication: Haematochezia
     Dosage: 95 MILLIGRAM, QD
     Dates: start: 20220101, end: 20220103
  14. Meckool [Concomitant]
     Indication: Haematochezia
     Dosage: 10 MILLIGRAM, QD
     Dates: start: 20220101, end: 20220101
  15. TIROPRAMIDE [Concomitant]
     Active Substance: TIROPRAMIDE
     Indication: Colitis ulcerative
     Dosage: 100 MILLIGRAM, TID
     Dates: start: 20211220, end: 20220716
  16. ASACOL [Concomitant]
     Active Substance: MESALAMINE
     Indication: Colitis ulcerative
     Dosage: 100 MILLILITER, QD
     Dates: start: 20211231, end: 20220111
  17. Solondo [Concomitant]
     Indication: Colitis ulcerative
     Dosage: 30 MILLIGRAM, QD
     Dates: start: 20220104, end: 20220110
  18. Solondo [Concomitant]
     Dosage: 20 MILLIGRAM, QD
     Dates: start: 20210111, end: 20220124
  19. Solondo [Concomitant]
     Dosage: 10 MILLIGRAM, QD
     Dates: start: 20220125, end: 20220202
  20. Solondo [Concomitant]
     Dosage: 30 MILLIGRAM, QD
     Dates: start: 20220609, end: 20220614
  21. Solondo [Concomitant]
     Dosage: 25 MILLIGRAM, QD
     Dates: start: 20220630, end: 20220706
  22. Solondo [Concomitant]
     Dosage: 20 MILLIGRAM, QD
     Dates: start: 20220707, end: 20220713
  23. Solondo [Concomitant]
     Dosage: 20 MILLIGRAM, QD
     Dates: start: 20220615, end: 20220621
  24. Solondo [Concomitant]
     Dosage: 15 MILLIGRAM, QD
     Dates: start: 20220622, end: 20220628
  25. Solondo [Concomitant]
     Dosage: 30 MILLIGRAM, QD
     Dates: start: 20221229
  26. PENTASA [Concomitant]
     Active Substance: MESALAMINE
     Indication: Colitis ulcerative
     Dosage: UNK UNK, BID
     Dates: start: 20180723, end: 20220923
  27. PENTASA [Concomitant]
     Active Substance: MESALAMINE
     Dosage: 2 GRAM, BID
     Dates: start: 20220330
  28. PENTASA [Concomitant]
     Active Substance: MESALAMINE
     Dosage: 1 GRAM, QD
     Dates: start: 20220330
  29. Dicamax d plus [Concomitant]
     Indication: Vitamin supplementation
     Dosage: UNK UNK, QD
     Dates: start: 20190718
  30. PAMIDRONATE DISODIUM [Concomitant]
     Active Substance: PAMIDRONATE DISODIUM
     Indication: Nutritional supplementation
     Dosage: 500 MILLIGRAM, QD
     Dates: start: 20220623, end: 20220623
  31. PAMIDRONATE DISODIUM [Concomitant]
     Active Substance: PAMIDRONATE DISODIUM
     Dosage: 500 MILLIGRAM, QD
     Dates: start: 20220630, end: 20220630
  32. PAMIDRONATE DISODIUM [Concomitant]
     Active Substance: PAMIDRONATE DISODIUM
     Dosage: 500 MILLIGRAM, QD
     Dates: start: 20221229, end: 20221229
  33. Ramnos [Concomitant]
     Indication: Colitis ulcerative
     Dosage: 25 MILLIGRAM, TID
     Dates: start: 20220609, end: 20220716
  34. ENTOCORT [Concomitant]
     Active Substance: BUDESONIDE
     Indication: Colitis ulcerative
     Dosage: 115 MILLIGRAM, QD
     Dates: start: 20220609, end: 20220615
  35. RAMOSETRON HYDROCHLORIDE [Concomitant]
     Active Substance: RAMOSETRON HYDROCHLORIDE
     Indication: Irritable bowel syndrome
     Dosage: 5 MICROGRAM, QD
     Dates: start: 20220623, end: 20220630
  36. Magnes [Concomitant]
     Indication: Mineral supplementation
     Dosage: 940 MILLIGRAM, QD
     Dates: start: 20211021, end: 20211229
  37. LOPERAMIDE [Concomitant]
     Active Substance: LOPERAMIDE
     Indication: Colitis ulcerative
     Dosage: 2 MILLIGRAM, QD
     Dates: start: 20220104, end: 20220629

REACTIONS (1)
  - Cytomegalovirus colitis [Recovered/Resolved]

NARRATIVE: CASE EVENT DATE: 20220111
